FAERS Safety Report 7526399-5 (Version None)
Quarter: 2011Q2

REPORT INFORMATION
  Report Type: 
  Country: None (occurrence: None)
  Receive Date: 20110606
  Receipt Date: 20110526
  Transmission Date: 20111010
  Serious: Yes (Other)
  Sender: FDA-Public Use
  Company Number: US-PFIZER INC-2011114974

PATIENT

DRUGS (2)
  1. ZANAFLEX [Suspect]
     Dosage: UNK
  2. ZYVOX [Suspect]
     Dosage: UNK

REACTIONS (2)
  - PYREXIA [None]
  - SEROTONIN SYNDROME [None]
